FAERS Safety Report 21697887 (Version 1)
Quarter: 2022Q4

REPORT INFORMATION
  Report Type: Spontaneous
  Country: GB (occurrence: GB)
  Receive Date: 20221208
  Receipt Date: 20221208
  Transmission Date: 20230113
  Serious: No
  Sender: FDA-Public Use
  Company Number: None

PATIENT
  Age: 37 Year
  Sex: Male
  Weight: 92.5 kg

DRUGS (13)
  1. TOLVAPTAN [Suspect]
     Active Substance: TOLVAPTAN
     Indication: Congenital cystic kidney disease
     Dosage: 15 MILLIGRAM, QD TABLET (UNCOATED, ORAL)
     Route: 048
     Dates: start: 20191119, end: 20191216
  2. TOLVAPTAN [Suspect]
     Active Substance: TOLVAPTAN
     Dosage: 45 MILLIGRAM, QD TABLET (UNCOATED, ORAL)
     Route: 048
     Dates: start: 20191119, end: 20191216
  3. TOLVAPTAN [Suspect]
     Active Substance: TOLVAPTAN
     Dosage: 30 MILLIGRAM, QD TABLET (UNCOATED, ORAL)
     Route: 048
     Dates: start: 20191217, end: 20200116
  4. TOLVAPTAN [Suspect]
     Active Substance: TOLVAPTAN
     Dosage: 60 MILLIGRAM, QD TABLET (UNCOATED, ORAL)
     Route: 048
     Dates: start: 20191217, end: 20200116
  5. TOLVAPTAN [Suspect]
     Active Substance: TOLVAPTAN
     Dosage: 90 MILLIGRAM, QD TABLET (UNCOATED, ORAL)
     Route: 048
     Dates: start: 20200117, end: 20200401
  6. TOLVAPTAN [Suspect]
     Active Substance: TOLVAPTAN
     Dosage: 30 MILLIGRAM, QD TABLET (UNCOATED, ORAL)
     Route: 048
     Dates: start: 20200117, end: 20200401
  7. TOLVAPTAN [Suspect]
     Active Substance: TOLVAPTAN
     Dosage: 15 MILLIGRAM, QD TABLET (UNCOATED, ORAL)
     Route: 048
     Dates: start: 20200623, end: 20200728
  8. TOLVAPTAN [Suspect]
     Active Substance: TOLVAPTAN
     Dosage: 45 MILLIGRAM, QD TABLET (UNCOATED, ORAL)
     Route: 048
     Dates: start: 20200623, end: 20200728
  9. TOLVAPTAN [Suspect]
     Active Substance: TOLVAPTAN
     Dosage: 45 MILLIGRAM, QD TABLET (UNCOATED, ORAL)
     Route: 048
     Dates: start: 20200825, end: 20200904
  10. TOLVAPTAN [Suspect]
     Active Substance: TOLVAPTAN
     Dosage: 15 MILLIGRAM, QD TABLET (UNCOATED, ORAL)
     Route: 048
     Dates: start: 20200825, end: 20200904
  11. CIPROFLOXACIN [Concomitant]
     Active Substance: CIPROFLOXACIN
     Indication: Product used for unknown indication
     Dosage: 500 MILLIGRAM, BID
     Route: 048
     Dates: start: 20200716, end: 20200813
  12. IRBESARTAN [Concomitant]
     Active Substance: IRBESARTAN
     Indication: Product used for unknown indication
     Dosage: 300 MILLIGRAM, QD
     Route: 048
     Dates: start: 20191119, end: 20191210
  13. IRBESARTAN [Concomitant]
     Active Substance: IRBESARTAN
     Dosage: 150 MILLIGRAM, QD
     Route: 048
     Dates: start: 20191210

REACTIONS (3)
  - Thirst [Recovering/Resolving]
  - Hepatic enzyme increased [Recovered/Resolved]
  - Hepatic enzyme increased [Recovered/Resolved]

NARRATIVE: CASE EVENT DATE: 20191201
